FAERS Safety Report 23751428 (Version 1)
Quarter: 2024Q2

REPORT INFORMATION
  Report Type: Spontaneous
  Country: US (occurrence: US)
  Receive Date: 20240417
  Receipt Date: 20240417
  Transmission Date: 20240716
  Serious: Yes (Hospitalization, Other)
  Sender: FDA-Public Use
  Company Number: US-CADILA HEALTHCARE LIMITED-US-ZYDUS-105388

PATIENT

DRUGS (20)
  1. LEFLUNOMIDE [Interacting]
     Active Substance: LEFLUNOMIDE
     Indication: Polyomavirus viraemia
     Dosage: 20 MILLIGRAM, QD
     Route: 065
  2. METHYLPREDNISOLONE [Suspect]
     Active Substance: METHYLPREDNISOLONE
     Indication: Immunosuppression
     Dosage: 250 MILLIGRAM
     Route: 042
  3. ROSUVASTATIN [Interacting]
     Active Substance: ROSUVASTATIN
     Indication: Coronary artery disease
     Dosage: 40 MILLIGRAM, QD
     Route: 065
  4. ROSUVASTATIN [Interacting]
     Active Substance: ROSUVASTATIN
     Indication: Hyperlipidaemia
  5. CYCLOSPORINE [Interacting]
     Active Substance: CYCLOSPORINE
     Indication: Polyomavirus viraemia
     Dosage: 150 MILLIGRAM, BID
     Route: 065
  6. CYCLOSPORINE [Interacting]
     Active Substance: CYCLOSPORINE
     Dosage: 75 MILLIGRAM, BID
     Route: 065
  7. AMOXICILLIN [Concomitant]
     Active Substance: AMOXICILLIN
     Indication: Enterococcal infection
     Dosage: 500 MILLIGRAM, BID
     Route: 065
  8. BELATACEPT [Concomitant]
     Active Substance: BELATACEPT
     Indication: Immunosuppression
     Dosage: UNK
     Route: 065
  9. TACROLIMUS [Concomitant]
     Active Substance: TACROLIMUS
     Indication: Immunosuppression
     Dosage: 3 MILLIGRAM, BID
     Route: 065
  10. CARVEDILOL [Concomitant]
     Active Substance: CARVEDILOL
     Indication: Product used for unknown indication
     Dosage: 25 MILLIGRAM, BID
     Route: 065
  11. CLOTRIMAZOLE [Concomitant]
     Active Substance: CLOTRIMAZOLE
     Indication: Prophylaxis against transplant rejection
     Dosage: 10 MILLIGRAM TROCHE 4 TIMES DAILY
     Route: 065
  12. DOXAZOSIN [Concomitant]
     Active Substance: DOXAZOSIN MESYLATE
     Indication: Hypertension
     Dosage: 2 MILLIGRAM, QD
     Route: 065
  13. MYCOPHENOLATE MOFETIL [Concomitant]
     Active Substance: MYCOPHENOLATE MOFETIL
     Indication: Immunosuppression
     Dosage: 720 MILLIGRAM, BID
     Route: 065
  14. MYCOPHENOLATE MOFETIL [Concomitant]
     Active Substance: MYCOPHENOLATE MOFETIL
     Dosage: 180 MILLIGRAM, BID
     Route: 065
  15. MYCOPHENOLATE MOFETIL [Concomitant]
     Active Substance: MYCOPHENOLATE MOFETIL
     Dosage: 360 MILLIGRAM, BID
     Route: 065
  16. NIFEDIPINE [Concomitant]
     Active Substance: NIFEDIPINE
     Indication: Product used for unknown indication
     Dosage: 60 MILLIGRAM, QD
     Route: 065
  17. PIPERACILLIN SODIUM\TAZOBACTAM SODIUM [Concomitant]
     Active Substance: PIPERACILLIN SODIUM\TAZOBACTAM SODIUM
     Indication: Urinary tract infection
     Dosage: 3.375 MILLIGRAM EVERY 12 HOURS
     Route: 042
  18. PREDNISONE [Concomitant]
     Active Substance: PREDNISONE
     Indication: Immunosuppression
     Dosage: 10 MILLIGRAM, QD
     Route: 065
  19. SULFAMETHOXAZOLE\TRIMETHOPRIM [Concomitant]
     Active Substance: SULFAMETHOXAZOLE\TRIMETHOPRIM
     Indication: Prophylaxis against transplant rejection
     Dosage: THRICE WEEKLY
     Route: 065
  20. VALGANCICLOVIR [Concomitant]
     Active Substance: VALGANCICLOVIR
     Indication: Prophylaxis against transplant rejection
     Dosage: 450 MILLIGRAM
     Route: 065

REACTIONS (4)
  - Acute kidney injury [Unknown]
  - Myopathy [Unknown]
  - Rhabdomyolysis [Unknown]
  - Drug interaction [Unknown]
